FAERS Safety Report 6421420-X (Version None)
Quarter: 2009Q4

REPORT INFORMATION
  Report Type: 
  Country: None (occurrence: None)
  Receive Date: 20091029
  Receipt Date: 20091029
  Transmission Date: 20100525
  Serious: Yes (Other)
  Sender: FDA-Public Use
  Company Number: None

PATIENT
  Sex: Male
  Weight: 77.1115 kg

DRUGS (1)
  1. TERBINAFINE HYDROCHLORIDE [Suspect]
     Indication: ONYCHOMYCOSIS
     Dosage: 1 TABLET DAILY MOUTH
     Route: 048
     Dates: start: 20090817, end: 20091009

REACTIONS (2)
  - DYSGEUSIA [None]
  - WEIGHT DECREASED [None]
